FAERS Safety Report 21712707 (Version 1)
Quarter: 2022Q4

REPORT INFORMATION
  Report Type: Spontaneous
  Country: US (occurrence: None)
  Receive Date: 20221212
  Receipt Date: 20221212
  Transmission Date: 20230113
  Serious: Yes (Hospitalization, Other)
  Sender: FDA-Public Use
  Company Number: US-MLMSERVICE-20221125-3943029-1

PATIENT
  Age: 38 Year
  Sex: Female

DRUGS (2)
  1. KETOROLAC [Suspect]
     Active Substance: KETOROLAC TROMETHAMINE
     Indication: Analgesic intervention supportive therapy
     Route: 042
  2. IBUPROFEN [Suspect]
     Active Substance: IBUPROFEN
     Indication: Analgesic intervention supportive therapy
     Route: 048

REACTIONS (2)
  - Renal tubular injury [Unknown]
  - Acute kidney injury [Unknown]
